FAERS Safety Report 6030099-0 (Version None)
Quarter: 2009Q1

REPORT INFORMATION
  Report Type: 
  Country: None (occurrence: None)
  Receive Date: 20090107
  Receipt Date: 20080915
  Transmission Date: 20090719
  Serious: No
  Sender: FDA-Public Use
  Company Number: US-BAYER-200813797BCC

PATIENT
  Age: 51 Year
  Sex: Female
  Weight: 100 kg

DRUGS (4)
  1. ALEVE [Suspect]
     Indication: TOOTHACHE
     Dosage: UNIT DOSE: 220 MG
     Route: 048
     Dates: start: 20080914
  2. VICODIN [Concomitant]
     Dates: start: 20080914
  3. TYLENOL (CAPLET) [Concomitant]
     Dates: start: 20080914
  4. TYLENOL W/ CODEINE [Concomitant]
     Dates: start: 20080915

REACTIONS (1)
  - TOOTHACHE [None]
